FAERS Safety Report 9175447 (Version 2)
Quarter: 2013Q2

REPORT INFORMATION
  Report Type: Spontaneous
  Country: MX (occurrence: MX)
  Receive Date: 20130320
  Receipt Date: 20130501
  Transmission Date: 20140414
  Serious: Yes (Other)
  Sender: FDA-Public Use
  Company Number: PHHY2013MX026193

PATIENT
  Age: 45 Year
  Sex: Female

DRUGS (1)
  1. PHENYLBUTAZONE [Suspect]
     Indication: SCIATICA
     Route: 030

REACTIONS (8)
  - Embolia cutis medicamentosa [Recovering/Resolving]
  - Leukocytosis [Recovering/Resolving]
  - Skin plaque [Recovering/Resolving]
  - Skin ulcer [Recovering/Resolving]
  - Dermatosis [Unknown]
  - Erythema [Recovering/Resolving]
  - Skin induration [Recovering/Resolving]
  - Scar [Not Recovered/Not Resolved]
